FAERS Safety Report 4813356-2 (Version None)
Quarter: 2005Q4

REPORT INFORMATION
  Report Type: 
  Country: None (occurrence: None)
  Receive Date: 20051028
  Receipt Date: 20051020
  Transmission Date: 20060501
  Serious: Yes (Life-Threatening)
  Sender: FDA-Public Use
  Company Number: IT-AVENTIS-200519315GDDC

PATIENT
  Age: 60 Year
  Sex: Male

DRUGS (2)
  1. KETEK [Suspect]
     Indication: BRONCHITIS ACUTE
     Route: 048
     Dates: start: 20051005, end: 20051009
  2. ATENOLOL [Concomitant]
     Route: 048

REACTIONS (1)
  - DISORIENTATION [None]
